FAERS Safety Report 25175785 (Version 2)
Quarter: 2025Q2

REPORT INFORMATION
  Report Type: Spontaneous
  Country: US (occurrence: US)
  Receive Date: 20250408
  Receipt Date: 20250411
  Transmission Date: 20250717
  Serious: No
  Sender: ABBVIE
  Company Number: US-ABBVIE-6214382

PATIENT
  Age: 19 Year
  Sex: Female

DRUGS (1)
  1. LILETTA [Suspect]
     Active Substance: LEVONORGESTREL
     Indication: Contraception
     Route: 015
     Dates: start: 20250403, end: 20250403

REACTIONS (3)
  - Device expulsion [Unknown]
  - Nausea [Unknown]
  - Uterine spasm [Unknown]

NARRATIVE: CASE EVENT DATE: 20250403
